FAERS Safety Report 4462616-6 (Version None)
Quarter: 2004Q3

REPORT INFORMATION
  Report Type: 
  Country: None (occurrence: None)
  Receive Date: 20040928
  Receipt Date: 20040909
  Transmission Date: 20050211
  Serious: Yes (Hospitalization)
  Sender: FDA-Public Use
  Company Number: 234646

PATIENT
  Age: 51 Year
  Sex: Female
  Weight: 59 kg

DRUGS (6)
  1. NOVORAPID(INSULIN ASPART) SOLUTION FOR INJECTION, 100U/ML [Suspect]
     Indication: INSULIN-REQUIRING TYPE II DIABETES MELLITUS
     Dates: start: 20031101, end: 20031104
  2. ACTRAPID(INSULIN HUMAN) SOLUTION FOR INJECTION [Suspect]
     Indication: INSULIN-REQUIRING TYPE II DIABETES MELLITUS
     Dates: start: 20031105, end: 20031106
  3. XANAX [Concomitant]
  4. AMAREL [Concomitant]
  5. ATORVASTATIN CALCIUM [Concomitant]
  6. INDAPAMIDE [Concomitant]

REACTIONS (1)
  - HAEMOLYTIC ANAEMIA [None]
